FAERS Safety Report 17584201 (Version 1)
Quarter: 2020Q1

REPORT INFORMATION
  Report Type: Spontaneous
  Country: US (occurrence: US)
  Receive Date: 20200323
  Receipt Date: 20200323
  Transmission Date: 20200409
  Serious: Yes (Hospitalization)
  Sender: FDA-Public Use
  Company Number: None

PATIENT
  Age: 61 Year
  Sex: Female
  Weight: 56.7 kg

DRUGS (1)
  1. PIQRAY [Suspect]
     Active Substance: ALPELISIB
     Indication: BREAST CANCER
     Route: 048
     Dates: end: 202002

REACTIONS (9)
  - Vision blurred [None]
  - Pleural effusion [None]
  - Blood glucose increased [None]
  - Diarrhoea [None]
  - Nausea [None]
  - Mucosal inflammation [None]
  - Retching [None]
  - Decubitus ulcer [None]
  - Lipase increased [None]

NARRATIVE: CASE EVENT DATE: 20200219
